FAERS Safety Report 5719790-0 (Version None)
Quarter: 2008Q2

REPORT INFORMATION
  Report Type: 
  Country: None (occurrence: None)
  Receive Date: 20080425
  Receipt Date: 20080425
  Transmission Date: 20081010
  Serious: Yes (Hospitalization)
  Sender: FDA-Public Use
  Company Number: None

PATIENT
  Age: 72 Year
  Sex: Male

DRUGS (2)
  1. RANITIDINE [Suspect]
     Indication: GASTROINTESTINAL DISORDER
     Dosage: 50 MG TID IV
     Route: 042
     Dates: start: 20080414, end: 20080417
  2. RANITIDINE [Suspect]
     Indication: PROPHYLAXIS
     Dosage: 50 MG TID IV
     Route: 042
     Dates: start: 20080414, end: 20080417

REACTIONS (1)
  - THROMBOCYTOPENIA [None]
